FAERS Safety Report 8743027 (Version 2)
Quarter: 2012Q4

REPORT INFORMATION
  Report Type: 
  Country: FR (occurrence: FR)
  Receive Date: 20120824
  Receipt Date: 20120919
  Transmission Date: 20130627
  Serious: Yes (Hospitalization)
  Sender: FDA-Public Use
  Company Number: FR-ABBOTT-12P-056-0969810-00

PATIENT
  Age: 58 Year
  Sex: Male

DRUGS (7)
  1. NORVIR [Suspect]
     Indication: HIV INFECTION
     Route: 048
     Dates: start: 20120627, end: 20120704
  2. BACTRIM [Suspect]
     Indication: PNEUMOCYSTIS JIROVECI PNEUMONIA
     Route: 048
     Dates: start: 20120612, end: 20120705
  3. BACTRIM [Suspect]
     Indication: PROPHYLAXIS
  4. ADIAZINE [Suspect]
     Indication: CEREBRAL TOXOPLASMOSIS
     Route: 048
     Dates: start: 20120618, end: 20120709
  5. TRIFLUCAN [Suspect]
     Indication: OESOPHAGEAL CANDIDIASIS
     Route: 048
     Dates: start: 20120608, end: 20120630
  6. COMBIVIR [Suspect]
     Indication: HIV INFECTION
     Dates: start: 20120627, end: 20120704
  7. PREZISTA [Suspect]
     Indication: HIV INFECTION
     Route: 048
     Dates: start: 20120627, end: 20120704

REACTIONS (7)
  - Drug reaction with eosinophilia and systemic symptoms [Recovering/Resolving]
  - Myocarditis [Recovering/Resolving]
  - Stevens-Johnson syndrome [Recovering/Resolving]
  - Drug hypersensitivity [Unknown]
  - Cytomegalovirus chorioretinitis [Unknown]
  - Dysphagia [Unknown]
  - Conjunctivitis [Unknown]
